FAERS Safety Report 23817707 (Version 1)
Quarter: 2024Q2

REPORT INFORMATION
  Report Type: Spontaneous
  Country: CZ (occurrence: CZ)
  Receive Date: 20240506
  Receipt Date: 20240506
  Transmission Date: 20240716
  Serious: Yes (Hospitalization, Other)
  Sender: FDA-Public Use
  Company Number: None

PATIENT
  Age: 68 Year
  Sex: Female
  Weight: 54 kg

DRUGS (12)
  1. KISQALI [Suspect]
     Active Substance: RIBOCICLIB
     Indication: Breast cancer metastatic
     Dosage: 400 MG, QD
     Route: 048
     Dates: start: 20230102
  2. KISQALI [Suspect]
     Active Substance: RIBOCICLIB
     Dosage: 200 MG, QD (1-0-0FROM 7/2023 EXTENSION OF THE PAUSE BETWEEN CDK (CYCLIN-DEPENDENT KINASE) INHIBITOR
     Route: 048
     Dates: start: 202305, end: 20230925
  3. KISQALI [Suspect]
     Active Substance: RIBOCICLIB
     Dosage: 600 MG, QD(1-0-0)
     Route: 048
     Dates: start: 20221017
  4. KISQALI [Suspect]
     Active Substance: RIBOCICLIB
     Dosage: 200 MG, QD(1-0-0)
     Route: 048
     Dates: start: 202304
  5. KISQALI [Suspect]
     Active Substance: RIBOCICLIB
     Dosage: 200 MG, QD(1-0-0)
     Route: 048
     Dates: start: 20230206
  6. KISQALI [Suspect]
     Active Substance: RIBOCICLIB
     Dosage: 600 MG, QD(1-0-0)
     Route: 048
     Dates: start: 20231128
  7. FULVESTRANT [Concomitant]
     Active Substance: FULVESTRANT
     Indication: Breast cancer metastatic
     Dosage: UNK (GOOD RESPONSE TO TREATMENT WITH FULVESTRANT, WHICH IS INDICATED FURTHER ON  )
     Route: 030
     Dates: start: 20221017
  8. FILGRASTIM [Concomitant]
     Active Substance: FILGRASTIM
     Indication: Product used for unknown indication
     Dosage: UNK, QD (48 IU SUBCUTANEOUSLY FOR 3 CONSECUTIVE DAYS, EVERY 24 HOURS)
     Route: 065
  9. MAGNESIUM LACTATE [Concomitant]
     Active Substance: MAGNESIUM LACTATE
     Indication: Product used for unknown indication
     Dosage: UNK, QD
     Route: 065
  10. ATORVASTATIN [Concomitant]
     Active Substance: ATORVASTATIN
     Indication: Product used for unknown indication
     Dosage: UNK
     Route: 065
  11. ISOPTIN [Concomitant]
     Active Substance: VERAPAMIL HYDROCHLORIDE
     Indication: Product used for unknown indication
     Dosage: 240 MG, QD
     Route: 065
  12. CALTRATE [Concomitant]
     Active Substance: CALCIUM CARBONATE
     Indication: Product used for unknown indication
     Dosage: UNK, Q12H (1-0-1)
     Route: 065

REACTIONS (13)
  - Thrombocytopenia [Not Recovered/Not Resolved]
  - Neutropenia [Not Recovered/Not Resolved]
  - Myelodysplastic syndrome [Not Recovered/Not Resolved]
  - Pancytopenia [Not Recovered/Not Resolved]
  - C-reactive protein increased [Unknown]
  - Anaemia [Unknown]
  - Erythema [Unknown]
  - Decreased appetite [Unknown]
  - Weight decreased [Unknown]
  - Feeling cold [Unknown]
  - Arthralgia [Unknown]
  - Fatigue [Unknown]
  - Malaise [Unknown]

NARRATIVE: CASE EVENT DATE: 20230206
